FAERS Safety Report 8137744-4 (Version None)
Quarter: 2012Q1

REPORT INFORMATION
  Report Type: 
  Country: None (occurrence: None)
  Receive Date: 20120215
  Receipt Date: 20120207
  Transmission Date: 20120608
  Serious: Yes (Hospitalization)
  Sender: FDA-Public Use
  Company Number: US-BAYER-2011-055184

PATIENT
  Age: 41 Year
  Sex: Female
  Weight: 82 kg

DRUGS (6)
  1. YAZ [Suspect]
     Dosage: UNK
     Dates: end: 20110101
  2. DROSPIRENONE AND ETHINYL ESTRADIOL [Suspect]
     Dosage: UNK
     Dates: end: 20110101
  3. LEVOXYL [Concomitant]
     Indication: HYPOTHYROIDISM
  4. LOVENOX [Concomitant]
     Dosage: UNK
     Dates: start: 20000101
  5. PREVACID [Concomitant]
  6. YASMIN [Suspect]
     Dosage: UNK
     Dates: end: 20110101

REACTIONS (3)
  - GALLBLADDER INJURY [None]
  - PAIN [None]
  - CHOLECYSTITIS [None]
